FAERS Safety Report 7726632-0 (Version None)
Quarter: 2011Q3

REPORT INFORMATION
  Report Type: 
  Country: None (occurrence: None)
  Receive Date: 20110902
  Receipt Date: 20110826
  Transmission Date: 20111222
  Serious: Yes (Other)
  Sender: FDA-Public Use
  Company Number: PHHY2011JP76940

PATIENT
  Sex: Male
  Weight: 77 kg

DRUGS (3)
  1. PLETAL [Concomitant]
     Dosage: 100 MG, UNK
     Route: 048
     Dates: start: 20100526, end: 20110125
  2. DIOVAN HCT [Suspect]
     Indication: HYPERTENSION
     Dosage: 1 DF, QD
     Route: 048
     Dates: start: 20100526
  3. LASIX [Concomitant]
     Indication: HYPERTENSION
     Dosage: 20 MG, UNK
     Route: 048
     Dates: start: 20110111, end: 20110125

REACTIONS (4)
  - ATRIOVENTRICULAR BLOCK SECOND DEGREE [None]
  - BLOOD PRESSURE DIASTOLIC DECREASED [None]
  - BLOOD URIC ACID INCREASED [None]
  - BLOOD GLUCOSE INCREASED [None]
